FAERS Safety Report 25361746 (Version 1)
Quarter: 2025Q2

REPORT INFORMATION
  Report Type: Spontaneous
  Country: US (occurrence: US)
  Receive Date: 20250527
  Receipt Date: 20250527
  Transmission Date: 20250717
  Serious: No
  Sender: ELI LILLY AND COMPANY
  Company Number: US-ELI_LILLY_AND_COMPANY-US202503023661

PATIENT
  Age: 68 Year
  Sex: Female

DRUGS (3)
  1. FORTEO [Suspect]
     Active Substance: TERIPARATIDE
     Indication: Osteoporosis
     Route: 058
     Dates: start: 202312
  2. FORTEO [Suspect]
     Active Substance: TERIPARATIDE
     Route: 065
  3. FORTEO [Suspect]
     Active Substance: TERIPARATIDE
     Route: 065

REACTIONS (3)
  - Intentional product use issue [Not Recovered/Not Resolved]
  - Injection site erythema [Unknown]
  - Injection site pain [Unknown]
